FAERS Safety Report 15272239 (Version 1)
Quarter: 2018Q3

REPORT INFORMATION
  Report Type: Spontaneous
  Country: US (occurrence: US)
  Receive Date: 20180813
  Receipt Date: 20180813
  Transmission Date: 20181010
  Serious: Yes (Other)
  Sender: FDA-Public Use
  Company Number: US-ENDO PHARMACEUTICALS INC-2018-040522

PATIENT
  Age: 58 Year
  Sex: Male
  Weight: 81.63 kg

DRUGS (2)
  1. XIAFLEX [Suspect]
     Active Substance: COLLAGENASE CLOSTRIDIUM HISTOLYTICUM
     Indication: PEYRONIE^S DISEASE
     Dosage: UNK MG, CYCLE 1, INJECTION 2
     Route: 026
     Dates: start: 20180727
  2. XIAFLEX [Suspect]
     Active Substance: COLLAGENASE CLOSTRIDIUM HISTOLYTICUM
     Dosage: UNK MG, CYCLE 1, INJECTION 1
     Route: 026
     Dates: start: 20180713

REACTIONS (5)
  - Contusion [Unknown]
  - Vascular rupture [Unknown]
  - Thrombosis [Unknown]
  - Pain [Unknown]
  - Haematoma [Unknown]

NARRATIVE: CASE EVENT DATE: 20180727
